FAERS Safety Report 6307307-1 (Version None)
Quarter: 2009Q3

REPORT INFORMATION
  Report Type: 
  Country: None (occurrence: None)
  Receive Date: 20090813
  Receipt Date: 20071220
  Transmission Date: 20100115
  Serious: Yes (Hospitalization, Other)
  Sender: FDA-Public Use
  Company Number: US-ASTRAZENECA-2007UW01699

PATIENT
  Age: 90 Year
  Sex: Female
  Weight: 68 kg

DRUGS (12)
  1. SEROQUEL [Suspect]
     Indication: SLEEP DISORDER
     Route: 048
     Dates: start: 20040101
  2. SEROQUEL [Suspect]
     Indication: MENTAL DISORDER
     Route: 048
     Dates: start: 20040101
  3. SEROQUEL [Suspect]
     Route: 048
     Dates: start: 20071002
  4. SEROQUEL [Suspect]
     Route: 048
     Dates: start: 20071002
  5. ATIVAN [Concomitant]
     Dates: start: 20060301, end: 20070801
  6. HYDRODIURIL [Concomitant]
  7. POTASSIUM CHLORIDE [Concomitant]
     Route: 048
  8. MICARDIS [Concomitant]
     Route: 048
  9. COLACE [Concomitant]
     Route: 048
  10. VALTREX [Concomitant]
     Indication: HERPES ZOSTER
     Route: 048
  11. SKELAXIN [Concomitant]
  12. CELEBREX [Concomitant]
     Dosage: STRENGTH-  100MG, 200MG  DOSE-  100MG-200MG
     Route: 048

REACTIONS (5)
  - DIABETES MELLITUS [None]
  - HERPES SIMPLEX [None]
  - HERPES ZOSTER [None]
  - NEUROPATHY PERIPHERAL [None]
  - TYPE 2 DIABETES MELLITUS [None]
